FAERS Safety Report 21268876 (Version 2)
Quarter: 2022Q4

REPORT INFORMATION
  Report Type: Spontaneous
  Country: US (occurrence: US)
  Receive Date: 20220830
  Receipt Date: 20221014
  Transmission Date: 20230113
  Serious: No
  Sender: FDA-Public Use
  Company Number: US-ALXN-A202210160

PATIENT
  Sex: Female

DRUGS (1)
  1. ULTOMIRIS [Suspect]
     Active Substance: RAVULIZUMAB-CWVZ
     Indication: Paroxysmal nocturnal haemoglobinuria
     Dosage: UNK
     Route: 065

REACTIONS (8)
  - Hypertension [Unknown]
  - Hot flush [Unknown]
  - Burning sensation [Unknown]
  - Fatigue [Unknown]
  - Rash [Unknown]
  - Arthralgia [Unknown]
  - Back pain [Unknown]
  - Pyrexia [Unknown]
